FAERS Safety Report 23866062 (Version 2)
Quarter: 2024Q2

REPORT INFORMATION
  Report Type: Spontaneous
  Country: US (occurrence: US)
  Receive Date: 20240517
  Receipt Date: 20240608
  Transmission Date: 20240716
  Serious: Yes (Other)
  Sender: FDA-Public Use
  Company Number: US-ChurchDwight-2024-CDW-00774

PATIENT
  Age: 63 Year
  Sex: Female

DRUGS (1)
  1. ORAJEL 3X MEDICATED FOR TOOTHACHE AND GUM [Suspect]
     Active Substance: BENZOCAINE\MENTHOL\ZINC CHLORIDE
     Indication: Toothache
     Dosage: USED 3-4 TIMES A WEEK 2 TIMES DAILY, HOWEVER NOT ON A DAILY BASIS
     Route: 061
     Dates: start: 20240502, end: 20240505

REACTIONS (18)
  - Fatigue [Recovering/Resolving]
  - Dizziness [Not Recovered/Not Resolved]
  - Asthenia [Recovering/Resolving]
  - Oral mucosal exfoliation [Not Recovered/Not Resolved]
  - Lip dry [Not Recovered/Not Resolved]
  - Malaise [Not Recovered/Not Resolved]
  - Dry mouth [Not Recovered/Not Resolved]
  - Brain fog [Not Recovered/Not Resolved]
  - Oral discomfort [Not Recovered/Not Resolved]
  - Oropharyngeal pain [Not Recovered/Not Resolved]
  - Tongue discomfort [Not Recovered/Not Resolved]
  - Hypoaesthesia oral [Not Recovered/Not Resolved]
  - Oral pain [Not Recovered/Not Resolved]
  - Gingival pain [Not Recovered/Not Resolved]
  - Neuralgia [Not Recovered/Not Resolved]
  - Toothache [Not Recovered/Not Resolved]
  - Salivary hypersecretion [Not Recovered/Not Resolved]
  - Accidental exposure to product [Unknown]

NARRATIVE: CASE EVENT DATE: 20240503
